FAERS Safety Report 4358822-1 (Version None)
Quarter: 2004Q2

REPORT INFORMATION
  Report Type: 
  Country: None (occurrence: None)
  Receive Date: 20040511
  Receipt Date: 20040503
  Transmission Date: 20050107
  Serious: Yes (Other)
  Sender: FDA-Public Use
  Company Number: 200411888BCC

PATIENT
  Age: 67 Year
  Sex: Male
  Weight: 86.1834 kg

DRUGS (9)
  1. ALEVE [Suspect]
     Indication: DENTAL DISCOMFORT
     Dosage: 440  MG, PRN/BID/QD, ORAL
     Route: 048
     Dates: start: 20040104, end: 20040404
  2. ALEVE [Suspect]
     Indication: DENTAL DISCOMFORT
     Dosage: 440  MG, PRN/BID/QD, ORAL
     Route: 048
     Dates: start: 20040404, end: 20040416
  3. ALEVE [Suspect]
     Indication: DENTAL DISCOMFORT
     Dosage: 440  MG, PRN/BID/QD, ORAL
     Route: 048
     Dates: start: 20040417
  4. ASPIRIN [Suspect]
     Dosage: 325 MG, QD, ORAL
     Route: 048
  5. VASOTEC [Concomitant]
  6. TRICOR [Concomitant]
  7. ZETIA /USA/ [Concomitant]
  8. ENALAPRIL MALEATE [Concomitant]
  9. AMBIEN [Concomitant]

REACTIONS (3)
  - EAR INFECTION [None]
  - MUSCLE SPASMS [None]
  - RENAL PAIN [None]
